FAERS Safety Report 5639142-1 (Version None)
Quarter: 2008Q1

REPORT INFORMATION
  Report Type: 
  Country: None (occurrence: None)
  Receive Date: 20080222
  Receipt Date: 20080123
  Transmission Date: 20080703
  Serious: Yes (Hospitalization)
  Sender: FDA-Public Use
  Company Number: 10E20080088

PATIENT
  Sex: Male

DRUGS (1)
  1. SOMATULINE SR               (LANREOTIDE ACETATE) [Suspect]
     Indication: ACROMEGALY

REACTIONS (1)
  - PANCREATITIS [None]
